FAERS Safety Report 5815921-2 (Version None)
Quarter: 2008Q3

REPORT INFORMATION
  Report Type: 
  Country: None (occurrence: None)
  Receive Date: 20080721
  Receipt Date: 20080707
  Transmission Date: 20090109
  Serious: Yes (Life-Threatening, Hospitalization)
  Sender: FDA-Public Use
  Company Number: FR-ROCHE-529996

PATIENT
  Sex: Male

DRUGS (11)
  1. PEGASYS [Suspect]
     Indication: DRUG USE FOR UNKNOWN INDICATION
     Dosage: FORM: INJECTABLE SOLUTION.
     Route: 058
     Dates: end: 20070924
  2. REBETOL [Suspect]
     Indication: DRUG USE FOR UNKNOWN INDICATION
     Route: 048
     Dates: start: 20070905, end: 20070924
  3. REBETOL [Suspect]
     Dosage: 600 MG/WEEK.
     Route: 048
  4. REBETOL [Suspect]
     Dosage: 1200 MG/WEEK. DOSE INCREASED.
     Route: 048
     Dates: start: 20070401
  5. REBETOL [Suspect]
     Route: 048
     Dates: start: 20070805
  6. CALTRATE [Concomitant]
     Route: 048
  7. CELECTOL [Concomitant]
     Route: 048
  8. TAREG [Concomitant]
     Route: 048
  9. KARDEGIC [Concomitant]
     Route: 048
  10. NEORECORMON [Concomitant]
     Dosage: 30000 THEN 60000 IU PER WEEK.
  11. ARANESP [Concomitant]
     Dates: start: 20070201

REACTIONS (1)
  - THROMBOTIC MICROANGIOPATHY [None]
